FAERS Safety Report 6648878-5 (Version None)
Quarter: 2010Q1

REPORT INFORMATION
  Report Type: 
  Country: None (occurrence: None)
  Receive Date: 20100324
  Receipt Date: 20100312
  Transmission Date: 20100710
  Serious: Yes (Hospitalization)
  Sender: FDA-Public Use
  Company Number: US-PFIZER INC-2010002354

PATIENT
  Sex: Male
  Weight: 67.347 kg

DRUGS (3)
  1. SUNITINIB MALATE [Suspect]
     Indication: NEOPLASM
     Dosage: 37.5 MG, 1X/DAY STARTING ON DAY 8
     Route: 048
     Dates: start: 20090428, end: 20100213
  2. IXABEPILONE [Suspect]
     Indication: COLORECTAL CANCER METASTATIC
     Dosage: 22 MG, DAY 1, 8 AND 15
     Route: 042
     Dates: start: 20090421, end: 20100209
  3. DARVOCET-N 100 [Concomitant]
     Dosage: 100 MG, AS NEEDED EVERY 4-6 HOURS
     Dates: start: 20091208

REACTIONS (1)
  - SMALL INTESTINAL OBSTRUCTION [None]
